FAERS Safety Report 24177009 (Version 1)
Quarter: 2024Q3

REPORT INFORMATION
  Report Type: Report from Study
  Country: CA (occurrence: CA)
  Receive Date: 20240806
  Receipt Date: 20240806
  Transmission Date: 20241016
  Serious: Yes (Hospitalization)
  Sender: ABBVIE
  Company Number: CA-ABBVIE-5863529

PATIENT
  Age: 73 Year

DRUGS (1)
  1. RINVOQ [Suspect]
     Active Substance: UPADACITINIB
     Indication: Rheumatoid arthritis
     Route: 048
     Dates: start: 20201102

REACTIONS (4)
  - Fall [Unknown]
  - Hypotension [Unknown]
  - Hypoxia [Unknown]
  - Injury [Unknown]

NARRATIVE: CASE EVENT DATE: 20240701
